FAERS Safety Report 4528492-8 (Version None)
Quarter: 2004Q4

REPORT INFORMATION
  Report Type: 
  Country: None (occurrence: None)
  Receive Date: 20041216
  Receipt Date: 20040814
  Transmission Date: 20050328
  Serious: Yes (Other)
  Sender: FDA-Public Use
  Company Number: 200416139US

PATIENT
  Sex: Male
  Weight: 70.45 kg

DRUGS (9)
  1. LANTUS [Suspect]
     Indication: DIABETES MELLITUS NON-INSULIN-DEPENDENT
     Dosage: DOSE UNIT: UNITS
     Dates: start: 20031101
  2. NOVOLIN R [Concomitant]
     Dosage: DOSE: SLIDING SCALE
  3. DURAGESIC [Concomitant]
     Dosage: DOSE: NOT PROVIDED
  4. ZANTAC [Concomitant]
     Dosage: DOSE: NOT PROVIDED
  5. MEGESTROL [Concomitant]
     Dosage: DOSE: NOT PROVIDED
  6. PANCRELIPASE [Concomitant]
     Dosage: DOSE: NOT PROVIDED
  7. REGLAN [Concomitant]
     Dosage: DOSE: NOT PROVIDED
  8. PROZAC [Concomitant]
     Dosage: DOSE: NOT PROVIDED
  9. UNKNOWN DRUG [Concomitant]
     Dosage: DOSE: NOT PROVIDED

REACTIONS (2)
  - CONVULSION [None]
  - PHARMACEUTICAL PRODUCT COMPLAINT [None]
